FAERS Safety Report 23778801 (Version 2)
Quarter: 2024Q2

REPORT INFORMATION
  Report Type: Spontaneous
  Country: US (occurrence: US)
  Receive Date: 20240424
  Receipt Date: 20240510
  Transmission Date: 20240715
  Serious: Yes (Hospitalization)
  Sender: FDA-Public Use
  Company Number: US-TEVA-VS-3185336

PATIENT
  Age: 63 Year
  Sex: Male

DRUGS (2)
  1. AMIODARONE [Suspect]
     Active Substance: AMIODARONE
     Indication: Atrial fibrillation
     Route: 065
  2. APIXABAN [Suspect]
     Active Substance: APIXABAN
     Indication: Anticoagulant therapy
     Route: 048

REACTIONS (3)
  - International normalised ratio increased [Recovering/Resolving]
  - Prothrombin time prolonged [Recovering/Resolving]
  - Drug interaction [Unknown]
